FAERS Safety Report 5424204-4 (Version None)
Quarter: 2007Q3

REPORT INFORMATION
  Report Type: 
  Country: None (occurrence: None)
  Receive Date: 20070822
  Receipt Date: 20070815
  Transmission Date: 20080115
  Serious: Yes (Hospitalization)
  Sender: FDA-Public Use
  Company Number: FEI2007-1433

PATIENT
  Age: 37 Year
  Sex: Female

DRUGS (1)
  1. IUD (INTRAUTERINE CONTRACEPTIVE DEVICE) (UTERINE) [Suspect]
     Indication: CONTRACEPTION
     Dosage: INTRA-UTERINE
     Route: 015
     Dates: start: 19960101, end: 20060228

REACTIONS (21)
  - ADHESION [None]
  - CALCULUS BLADDER [None]
  - CONDITION AGGRAVATED [None]
  - GENERAL PHYSICAL HEALTH DETERIORATION [None]
  - HAEMOGLOBIN DECREASED [None]
  - HEART RATE INCREASED [None]
  - HYDRONEPHROSIS [None]
  - INTESTINAL OBSTRUCTION [None]
  - INTRA-ABDOMINAL HAEMORRHAGE [None]
  - IUCD COMPLICATION [None]
  - IUD MIGRATION [None]
  - PANCREATITIS CHRONIC [None]
  - PELVIC ABSCESS [None]
  - PERITONITIS [None]
  - POST PROCEDURAL COMPLICATION [None]
  - PYELONEPHRITIS [None]
  - SCAR [None]
  - URINARY INCONTINENCE [None]
  - UROGENITAL FISTULA [None]
  - UTERINE ENLARGEMENT [None]
  - UTERINE FISTULA [None]
